FAERS Safety Report 24770803 (Version 1)
Quarter: 2024Q4

REPORT INFORMATION
  Report Type: Spontaneous
  Country: US (occurrence: US)
  Receive Date: 20241224
  Receipt Date: 20241224
  Transmission Date: 20250115
  Serious: Yes (Death, Other)
  Sender: AMGEN
  Company Number: US-AMGEN-USASP2024248162

PATIENT

DRUGS (2)
  1. TALIMOGENE LAHERPAREPVEC [Suspect]
     Active Substance: TALIMOGENE LAHERPAREPVEC
     Indication: Malignant melanoma
     Dosage: UNK (4 ML OF 10^6 PFU/ML OF T-VEC FOLLOWED 3 WEEKS)
     Route: 026
  2. TALIMOGENE LAHERPAREPVEC [Suspect]
     Active Substance: TALIMOGENE LAHERPAREPVEC
     Dosage: UNK, Q2WK (4 ML OF 10^8 PFU/ML EVERY 2 WEEKS FOR UP TO 24 TREATMENTS)
     Route: 026

REACTIONS (3)
  - Malignant melanoma stage III [Fatal]
  - Malignant melanoma stage IV [Fatal]
  - Therapy partial responder [Unknown]
